FAERS Safety Report 10575410 (Version 1)
Quarter: 2014Q4

REPORT INFORMATION
  Report Type: Spontaneous
  Country: US (occurrence: None)
  Receive Date: 20141107
  Receipt Date: 20141107
  Transmission Date: 20150529
  Serious: Yes (Other)
  Sender: FDA-Public Use
  Company Number: ABR_01850_2014

PATIENT
  Sex: Female
  Weight: 90.72 kg

DRUGS (1)
  1. ERYTHROMYCIN. [Suspect]
     Active Substance: ERYTHROMYCIN
     Indication: BRONCHITIS
     Dates: start: 20141025, end: 20141027

REACTIONS (11)
  - Breast enlargement [None]
  - Lip swelling [None]
  - Cheilitis [None]
  - Diarrhoea [None]
  - Cough [None]
  - Oedema [None]
  - Pain [None]
  - Unevaluable event [None]
  - Hypersensitivity [None]
  - Abdominal pain upper [None]
  - Insomnia [None]
